FAERS Safety Report 17581922 (Version 1)
Quarter: 2020Q1

REPORT INFORMATION
  Report Type: Spontaneous
  Country: US (occurrence: US)
  Receive Date: 20200325
  Receipt Date: 20200325
  Transmission Date: 20200409
  Serious: Yes (Other)
  Sender: FDA-Public Use
  Company Number: None

PATIENT
  Age: 65 Year
  Sex: Female

DRUGS (4)
  1. ATENOLOL 100MG [Concomitant]
     Active Substance: ATENOLOL
  2. ATENOLOL. [Suspect]
     Active Substance: ATENOLOL
     Indication: BLOOD PRESSURE MEASUREMENT
     Route: 048
     Dates: start: 20190212
  3. ATENOLOL. [Suspect]
     Active Substance: ATENOLOL
     Indication: CARDIAC MURMUR
     Route: 048
     Dates: start: 20190212
  4. AMLODIPINE [Concomitant]
     Active Substance: AMLODIPINE BESYLATE

REACTIONS (5)
  - Cardiac flutter [None]
  - Headache [None]
  - Dyspnoea [None]
  - Chest pain [None]
  - Tinnitus [None]

NARRATIVE: CASE EVENT DATE: 20200310
